FAERS Safety Report 16955398 (Version 2)
Quarter: 2019Q4

REPORT INFORMATION
  Report Type: Spontaneous
  Country: FR (occurrence: FR)
  Receive Date: 20191024
  Receipt Date: 20191226
  Transmission Date: 20200122
  Serious: Yes (Hospitalization, Other)
  Sender: FDA-Public Use
  Company Number: FR-GLAXOSMITHKLINE-FR2019192030

PATIENT
  Age: 21 Year
  Sex: Female
  Weight: 57 kg

DRUGS (5)
  1. LEELOO [Suspect]
     Active Substance: ETHINYL ESTRADIOL\LEVONORGESTREL
     Indication: CONTRACEPTION
     Dosage: 1X / DAY PDT 21 DAYS THEN 7 DAYS OFF
     Route: 048
     Dates: start: 201809, end: 20190928
  2. SPASFON [Concomitant]
     Indication: PAIN
     Dosage: IF NEEDED (MAX 6 CP / D); AS NECESSARY
     Route: 048
     Dates: end: 20190928
  3. DOLIPRANE [Concomitant]
     Active Substance: ACETAMINOPHEN
     Indication: PAIN
     Dosage: IF NEEDED (MAX 4 / D); AS NECESSARY
     Route: 048
     Dates: end: 20190928
  4. VENTOLINE [Concomitant]
     Active Substance: ALBUTEROL
     Indication: ASTHMA
     Dosage: IF NECESSARY (MAX 8 / DAY); AS NECESSARY
     Route: 055
     Dates: end: 20190928
  5. LAMICTAL [Suspect]
     Active Substance: LAMOTRIGINE
     Indication: EPILEPSY
     Dosage: 1-0-1
     Route: 048
     Dates: start: 201906, end: 20190928

REACTIONS (1)
  - Pancreatitis acute [Recovered/Resolved]

NARRATIVE: CASE EVENT DATE: 20190927
